FAERS Safety Report 12104775 (Version 3)
Quarter: 2016Q2

REPORT INFORMATION
  Report Type: Spontaneous
  Country: US (occurrence: US)
  Receive Date: 20160223
  Receipt Date: 20160620
  Transmission Date: 20160815
  Serious: No
  Sender: FDA-Public Use
  Company Number: US-PFIZER INC-2016046851

PATIENT
  Age: 36 Year
  Sex: Male

DRUGS (2)
  1. TYLENOL [Suspect]
     Active Substance: ACETAMINOPHEN
     Dosage: UNK
  2. CABERGOLINE. [Suspect]
     Active Substance: CABERGOLINE
     Dosage: UNK

REACTIONS (1)
  - Drug hypersensitivity [Unknown]
